FAERS Safety Report 15125270 (Version 1)
Quarter: 2018Q3

REPORT INFORMATION
  Report Type: Spontaneous
  Country: KR (occurrence: KR)
  Receive Date: 20180710
  Receipt Date: 20180710
  Transmission Date: 20181010
  Serious: Yes (Death, Other)
  Sender: FDA-Public Use
  Company Number: KR-ACTELION-A-CH2018-175027

PATIENT
  Age: 80 Year

DRUGS (1)
  1. OPSUMIT [Suspect]
     Active Substance: MACITENTAN
     Indication: PULMONARY ARTERIAL HYPERTENSION
     Dosage: UNK, OD
     Route: 048

REACTIONS (2)
  - Death [Fatal]
  - Atrial septal defect repair [Unknown]

NARRATIVE: CASE EVENT DATE: 201806
